FAERS Safety Report 5490193-X (Version None)
Quarter: 2007Q4

REPORT INFORMATION
  Report Type: 
  Country: None (occurrence: None)
  Receive Date: 20071017
  Receipt Date: 20071003
  Transmission Date: 20080405
  Serious: Yes (Hospitalization)
  Sender: FDA-Public Use
  Company Number: CERZ-11906

PATIENT
  Sex: Female
  Weight: 76.2 kg

DRUGS (1)
  1. CEREZYME [Suspect]
     Indication: GAUCHER'S DISEASE
     Dosage: 2600 UNITS Q2WKS IV
     Route: 042
     Dates: start: 20021015

REACTIONS (3)
  - GALLBLADDER DISORDER [None]
  - VOMITING [None]
  - WEIGHT DECREASED [None]
